FAERS Safety Report 4916827-3 (Version None)
Quarter: 2006Q1

REPORT INFORMATION
  Report Type: 
  Country: None (occurrence: None)
  Receive Date: 20060216
  Receipt Date: 20060216
  Transmission Date: 20060701
  Serious: Yes (Hospitalization)
  Sender: FDA-Public Use
  Company Number: None

PATIENT
  Age: 65 Year
  Sex: Female
  Weight: 67.586 kg

DRUGS (7)
  1. TAXOTERE [Suspect]
     Indication: BREAST CANCER METASTATIC
     Dosage: 135 MG Q3WK IV
     Route: 042
     Dates: start: 20050915, end: 20060126
  2. BEVACIZUMAB [Suspect]
     Indication: BREAST CANCER METASTATIC
     Dosage: 1098 MG Q 3 WK IV
     Route: 042
     Dates: start: 20050915, end: 20060126
  3. DIVAN [Concomitant]
  4. NORVASC [Concomitant]
  5. FENTANYL [Concomitant]
  6. LORTAB [Concomitant]
  7. ALPRAZOLAM [Concomitant]

REACTIONS (1)
  - CELLULITIS [None]
